FAERS Safety Report 14545882 (Version 1)
Quarter: 2018Q1

REPORT INFORMATION
  Report Type: Spontaneous
  Country: US (occurrence: US)
  Receive Date: 20180219
  Receipt Date: 20180219
  Transmission Date: 20180509
  Serious: No
  Sender: FDA-Public Use
  Company Number: US-009507513-1802USA007845

PATIENT
  Age: 20 Year
  Sex: Female
  Weight: 58.05 kg

DRUGS (1)
  1. NUVARING [Suspect]
     Active Substance: ETHINYL ESTRADIOL\ETONOGESTREL
     Indication: ENDOMETRIOSIS
     Dosage: 4 WEEKS INSIDE THEN REMOVE
     Route: 067
     Dates: start: 20180211

REACTIONS (5)
  - Complication associated with device [Unknown]
  - Female condom [Unknown]
  - Medical device site discomfort [Unknown]
  - Incorrect drug administration duration [Unknown]
  - Product use in unapproved indication [Unknown]

NARRATIVE: CASE EVENT DATE: 20180211
